FAERS Safety Report 20917875 (Version 1)
Quarter: 2022Q2

REPORT INFORMATION
  Report Type: Spontaneous
  Country: US (occurrence: US)
  Receive Date: 20220606
  Receipt Date: 20220606
  Transmission Date: 20220721
  Serious: No
  Sender: FDA-Public Use
  Company Number: US-AMGEN-USASP2022093986

PATIENT
  Age: 57 Year
  Sex: Female
  Weight: 65.4 kg

DRUGS (1)
  1. MVASI [Suspect]
     Active Substance: BEVACIZUMAB-AWWB
     Indication: Lung neoplasm malignant
     Dosage: 950
     Route: 065
     Dates: start: 20220215

REACTIONS (2)
  - Epistaxis [Unknown]
  - Stomatitis [Unknown]

NARRATIVE: CASE EVENT DATE: 20220331
